FAERS Safety Report 4590254-3 (Version None)
Quarter: 2005Q1

REPORT INFORMATION
  Report Type: 
  Country: None (occurrence: None)
  Receive Date: 20050217
  Receipt Date: 20041126
  Transmission Date: 20050727
  Serious: Yes (Hospitalization)
  Sender: FDA-Public Use
  Company Number: 2004BI000559

PATIENT
  Age: 39 Year
  Sex: Female
  Weight: 49.8957 kg

DRUGS (15)
  1. AVONEX [Suspect]
     Indication: MULTIPLE SCLEROSIS
     Dosage: 30 UG; QW; IM
     Route: 030
     Dates: start: 20020101, end: 20030101
  2. AVONEX [Suspect]
     Indication: MULTIPLE SCLEROSIS
     Dosage: SEE IMAGE
     Route: 030
     Dates: start: 20030101, end: 20040101
  3. AVONEX [Suspect]
     Indication: MULTIPLE SCLEROSIS
     Dosage: SEE IMAGE
     Route: 030
     Dates: start: 20040101
  4. SERZONE [Concomitant]
  5. IMIPRAMINE [Concomitant]
  6. HYDROCHLORIDE [Concomitant]
  7. ZANTAC [Concomitant]
  8. NEXIUM [Concomitant]
  9. XANAX [Concomitant]
  10. SINGULAIR [Concomitant]
  11. ZYRTEC [Concomitant]
  12. CALCIUM WITH VITAMIN D [Concomitant]
  13. ZOLOFT [Concomitant]
  14. PROVIGIL [Concomitant]
  15. ZYPREXA [Concomitant]

REACTIONS (10)
  - ANAEMIA [None]
  - CONDITION AGGRAVATED [None]
  - DYSFUNCTIONAL UTERINE BLEEDING [None]
  - ENDOMETRIAL HYPERPLASIA [None]
  - HERPES VIRUS INFECTION [None]
  - HYPOAESTHESIA [None]
  - IMMOBILE [None]
  - INFLUENZA LIKE ILLNESS [None]
  - MENORRHAGIA [None]
  - MULTIPLE SCLEROSIS [None]
